FAERS Safety Report 14662354 (Version 5)
Quarter: 2018Q3

REPORT INFORMATION
  Report Type: Spontaneous
  Country: US (occurrence: US)
  Receive Date: 20180321
  Receipt Date: 20180814
  Transmission Date: 20181010
  Serious: Yes (Death, Hospitalization, Other)
  Sender: FDA-Public Use
  Company Number: US-BIOGEN-2018BI00544388

PATIENT
  Age: 69 Year
  Sex: Female

DRUGS (9)
  1. ALBUTEROL. [Concomitant]
     Active Substance: ALBUTEROL
     Indication: WHEEZING
     Dosage: EVERY 4 HOURS AS NEEDED
     Route: 065
     Dates: start: 20180202, end: 20180304
  2. LAMICTAL [Concomitant]
     Active Substance: LAMOTRIGINE
     Indication: PRODUCT USED FOR UNKNOWN INDICATION
     Route: 048
     Dates: start: 20161218
  3. LUMIGAN [Concomitant]
     Active Substance: BIMATOPROST
     Indication: PRODUCT USED FOR UNKNOWN INDICATION
     Dosage: 1 DROP INTO BOTH EYES EVERY EVENING AT 8PM
     Route: 047
     Dates: start: 20170522
  4. MORPHINE [Concomitant]
     Active Substance: MORPHINE
     Indication: DYSPNOEA
     Dosage: EVERY 4 HOURS AS NEEDED
     Route: 050
     Dates: start: 20180202, end: 20180209
  5. ZOFRAN [Concomitant]
     Active Substance: ONDANSETRON HYDROCHLORIDE
     Indication: NAUSEA
     Dosage: EVERY 6 HOURS AS NEEDED
     Route: 050
     Dates: start: 20180202, end: 20180304
  6. COMBIGAN [Concomitant]
     Active Substance: BRIMONIDINE TARTRATE\TIMOLOL MALEATE
     Indication: PRODUCT USED FOR UNKNOWN INDICATION
     Dosage: 1 DROP INTO BOTH EYES EVERY MORNING
     Route: 047
     Dates: start: 20140815
  7. PREDNISOLONE. [Concomitant]
     Active Substance: PREDNISOLONE
     Indication: PRODUCT USED FOR UNKNOWN INDICATION
     Dosage: 1 DROP INTO LEFT EYE
     Route: 047
     Dates: start: 20170523
  8. TYSABRI [Suspect]
     Active Substance: NATALIZUMAB
     Indication: MULTIPLE SCLEROSIS
     Route: 042
     Dates: start: 20070307
  9. COLLAGENASE SANTYL [Concomitant]
     Active Substance: COLLAGENASE CLOSTRIDIUM HISTOLYTICUM
     Indication: PRODUCT USED FOR UNKNOWN INDICATION
     Route: 061
     Dates: start: 20180203, end: 20180305

REACTIONS (17)
  - Weight decreased [Not Recovered/Not Resolved]
  - General physical health deterioration [Recovered/Resolved]
  - Catheter placement [Unknown]
  - Urosepsis [Recovered/Resolved]
  - Skin disorder [Not Recovered/Not Resolved]
  - Scar [Recovered/Resolved with Sequelae]
  - Asthenia [Recovered/Resolved]
  - Atrial fibrillation [Not Recovered/Not Resolved]
  - Aspiration [Not Recovered/Not Resolved]
  - Wound secretion [Not Recovered/Not Resolved]
  - Limb injury [Recovered/Resolved with Sequelae]
  - Pneumonia aspiration [Fatal]
  - Chest discomfort [Recovered/Resolved with Sequelae]
  - Wound [Recovered/Resolved with Sequelae]
  - Fear of eating [Recovered/Resolved with Sequelae]
  - Pyrexia [Recovered/Resolved]
  - Infection [Recovered/Resolved]

NARRATIVE: CASE EVENT DATE: 20170912
